FAERS Safety Report 10279779 (Version 1)
Quarter: 2014Q3

REPORT INFORMATION
  Report Type: Spontaneous
  Country: TW (occurrence: None)
  Receive Date: 20140702
  Receipt Date: 20140702
  Transmission Date: 20150326
  Serious: Yes (Hospitalization)
  Sender: FDA-Public Use
  Company Number: IPC201406-000316

PATIENT
  Age: 77 Year
  Sex: Male

DRUGS (1)
  1. WARFARIN (WARFARIN) (WARFARIN) [Suspect]
     Active Substance: WARFARIN
     Dosage: FOUR TIMES DAILY

REACTIONS (4)
  - Prothrombin time prolonged [None]
  - Intestinal haematoma [None]
  - International normalised ratio increased [None]
  - Activated partial thromboplastin time prolonged [None]
